FAERS Safety Report 7797658 (Version 7)
Quarter: 2014Q1

REPORT INFORMATION
  Report Type: Report from Study
  Country: JP (occurrence: JP)
  Receive Date: 20110203
  Receipt Date: 20140305
  Transmission Date: 20141002
  Serious: Yes (Hospitalization)
  Sender: FDA-Public Use
  Company Number: JP-PFIZER INC-2011019126

PATIENT
  Age: 56 Year
  Sex: Male
  Weight: 67.2 kg

DRUGS (6)
  1. TORISEL [Suspect]
     Indication: RENAL CELL CARCINOMA
     Dosage: 25 MG, WEEKLY
     Route: 041
     Dates: start: 20101227, end: 20110117
  2. POLARAMINE [Concomitant]
     Indication: PROPHYLAXIS
     Dosage: 5 MG, WEEKLY
     Route: 042
     Dates: start: 20101227, end: 20110117
  3. ADALAT [Concomitant]
     Dosage: 20 MG, 3X/DAY
     Route: 048
  4. MICOMBI COMBINATION [Concomitant]
     Dosage: 1 DF, 1X/DAY
     Route: 048
  5. PENTASA [Concomitant]
     Dosage: 1000 MG, 3X/DAY
     Route: 048
  6. PREDONINE [Concomitant]
     Dosage: 5 MG, 3X/DAY
     Route: 048
     Dates: start: 20110104

REACTIONS (2)
  - Colitis ulcerative [Recovering/Resolving]
  - Cytomegalovirus enterocolitis [Recovered/Resolved]
